FAERS Safety Report 7661071-2 (Version None)
Quarter: 2011Q3

REPORT INFORMATION
  Report Type: 
  Country: None (occurrence: None)
  Receive Date: 20110805
  Receipt Date: 20101001
  Transmission Date: 20111222
  Serious: No
  Sender: FDA-Public Use
  Company Number: US-ABBOTT-10P-163-0675133-00

PATIENT
  Age: 77 Year
  Sex: Male
  Weight: 77.18 kg

DRUGS (4)
  1. LIPITOR [Suspect]
     Indication: PRODUCT USED FOR UNKNOWN INDICATION
  2. NIASPAN [Suspect]
     Indication: BLOOD TRIGLYCERIDES INCREASED
  3. ASPIRIN [Concomitant]
     Indication: PRODUCT USED FOR UNKNOWN INDICATION
     Dosage: AT BEDTIME
  4. NIASPAN [Suspect]
     Dosage: AT BEDTIME
     Dates: start: 20100901

REACTIONS (3)
  - ARTHRALGIA [None]
  - RASH [None]
  - FEELING HOT [None]
